FAERS Safety Report 8158610-4 (Version None)
Quarter: 2012Q1

REPORT INFORMATION
  Report Type: 
  Country: None (occurrence: None)
  Receive Date: 20120217
  Receipt Date: 20120201
  Transmission Date: 20120608
  Serious: No
  Sender: FDA-Public Use
  Company Number: ENDC20120006

PATIENT
  Sex: Female
  Weight: 83.9154 kg

DRUGS (3)
  1. OXYCODONE AND ACETAMINOPHEN [Suspect]
     Indication: NECK PAIN
     Dosage: 40/1300 MG, 4 IN 1 D, ORAL
     Route: 048
     Dates: start: 20110101
  2. OXYCODONE AND ACETAMINOPHEN [Suspect]
     Indication: FIBROMYALGIA
     Dosage: 40/1300 MG, 4 IN 1 D, ORAL
     Route: 048
     Dates: start: 20110101
  3. OXYCODONE AND ACETAMINOPHEN [Suspect]
     Indication: INTERVERTEBRAL DISC PROTRUSION
     Dosage: 40/1300 MG, 4 IN 1 D, ORAL
     Route: 048
     Dates: start: 20110101

REACTIONS (3)
  - PAIN IN EXTREMITY [None]
  - COELIAC DISEASE [None]
  - DIARRHOEA [None]
